FAERS Safety Report 23233228 (Version 1)
Quarter: 2023Q4

REPORT INFORMATION
  Report Type: Report from Study
  Country: US (occurrence: US)
  Receive Date: 20231128
  Receipt Date: 20231128
  Transmission Date: 20240110
  Serious: Yes (Hospitalization, Other)
  Sender: FDA-Public Use
  Company Number: US-JNJFOC-20231153848

PATIENT
  Age: 75 Year
  Sex: Female

DRUGS (7)
  1. SPRAVATO [Suspect]
     Active Substance: ESKETAMINE
     Indication: Depression
     Dosage: 56 MG, 1 DOSE
     Dates: start: 20230617, end: 20230617
  2. SPRAVATO [Suspect]
     Active Substance: ESKETAMINE
     Dosage: 70 MG, 1 DOSE
     Dates: start: 20230619, end: 20230619
  3. SPRAVATO [Suspect]
     Active Substance: ESKETAMINE
     Dosage: 56 MG, 1 DOSE
     Dates: start: 20230622, end: 20230622
  4. SPRAVATO [Suspect]
     Active Substance: ESKETAMINE
     Dosage: 70 MG, 1 DOSE
     Dates: start: 20230628, end: 20230628
  5. SPRAVATO [Suspect]
     Active Substance: ESKETAMINE
     Dosage: 56 MG, 6 DOSES
     Dates: start: 20230701, end: 20230725
  6. SPRAVATO [Suspect]
     Active Substance: ESKETAMINE
     Dosage: 70 MG, 4 DOSES
     Dates: start: 20230801, end: 20230824
  7. SPRAVATO [Suspect]
     Active Substance: ESKETAMINE
     Dosage: 84 MG, 3 DOSES
     Dates: start: 20230831, end: 20230911

REACTIONS (1)
  - Fall [Unknown]

NARRATIVE: CASE EVENT DATE: 20230101
